FAERS Safety Report 13624787 (Version 3)
Quarter: 2019Q1

REPORT INFORMATION
  Report Type: Report from Study
  Country: TR (occurrence: TR)
  Receive Date: 20170608
  Receipt Date: 20190101
  Transmission Date: 20190417
  Serious: Yes (Death)
  Sender: FDA-Public Use
  Company Number: TR-ROCHE-1945610

PATIENT
  Age: 54 Year
  Sex: Male

DRUGS (17)
  1. MYCOPHENOLATE MOFETIL. [Suspect]
     Active Substance: MYCOPHENOLATE MOFETIL
     Indication: IMMUNOSUPPRESSANT DRUG THERAPY
     Route: 065
  2. RITUXIMAB. [Suspect]
     Active Substance: RITUXIMAB
     Indication: NON-HODGKIN^S LYMPHOMA STAGE III
     Route: 065
  3. HEPARIN [Concomitant]
     Active Substance: HEPARIN SODIUM
     Indication: THROMBOSIS PROPHYLAXIS
     Route: 058
  4. TACROLIMUS. [Suspect]
     Active Substance: TACROLIMUS
     Indication: IMMUNOSUPPRESSANT DRUG THERAPY
     Dosage: TAPERED TO 7-10 NG/ML 6 MONTHS POSTOPERATIVELY
     Route: 065
  5. PREDNISOLONE. [Suspect]
     Active Substance: PREDNISOLONE
     Indication: IMMUNOSUPPRESSANT DRUG THERAPY
     Route: 065
  6. PREDNISOLONE. [Suspect]
     Active Substance: PREDNISOLONE
     Indication: IMMUNOSUPPRESSANT DRUG THERAPY
     Dosage: 1 WEEK POSTOPERATIVELY
     Route: 065
  7. RAPAMYCIN [Concomitant]
     Active Substance: SIROLIMUS
  8. NYSTATIN. [Concomitant]
     Active Substance: NYSTATIN
     Indication: ANTIFUNGAL PROPHYLAXIS
     Route: 048
  9. CYCLOPHOSPHAMIDE. [Suspect]
     Active Substance: CYCLOPHOSPHAMIDE
     Indication: NON-HODGKIN^S LYMPHOMA STAGE III
     Route: 065
  10. ADRIAMYCIN [Suspect]
     Active Substance: DOXORUBICIN HYDROCHLORIDE
     Indication: NON-HODGKIN^S LYMPHOMA STAGE III
     Route: 065
  11. PYRIMETHAMINE/SULFADOXINE [Concomitant]
     Active Substance: PYRIMETHAMINE\SULFADOXINE
     Indication: ANTIFUNGAL PROPHYLAXIS
     Route: 065
  12. VALACICLOVIR [Concomitant]
     Active Substance: VALACYCLOVIR HYDROCHLORIDE
     Indication: ANTIVIRAL PROPHYLAXIS
     Route: 048
  13. PREDNISOLONE. [Suspect]
     Active Substance: PREDNISOLONE
     Dosage: MAINTENANCE TREATMENT
     Route: 065
  14. ANTITHYMOCYTE GLOBULIN [Suspect]
     Active Substance: THYMOCYTE IMMUNE GLOBULIN NOS
     Indication: IMMUNOSUPPRESSANT DRUG THERAPY
     Route: 050
  15. VINCRISTINE [Suspect]
     Active Substance: VINCRISTINE
     Indication: NON-HODGKIN^S LYMPHOMA STAGE III
     Route: 065
  16. TACROLIMUS. [Suspect]
     Active Substance: TACROLIMUS
     Indication: IMMUNOSUPPRESSANT DRUG THERAPY
     Dosage: WITH BLOOD LEVELS BETWEEN 15 AND 20 NG/ML
     Route: 065
  17. PREDNISOLONE. [Suspect]
     Active Substance: PREDNISOLONE
     Indication: IMMUNOSUPPRESSANT DRUG THERAPY
     Dosage: MAINTENANCE TREATMENT
     Route: 065

REACTIONS (4)
  - Central nervous system fungal infection [Fatal]
  - Squamous cell carcinoma [Fatal]
  - Bronchopulmonary aspergillosis [Fatal]
  - Non-Hodgkin^s lymphoma stage III [Fatal]
